FAERS Safety Report 25686019 (Version 1)
Quarter: 2025Q3

REPORT INFORMATION
  Report Type: Spontaneous
  Country: US (occurrence: US)
  Receive Date: 20250815
  Receipt Date: 20250815
  Transmission Date: 20251020
  Serious: No
  Sender: PFIZER
  Company Number: US-PFIZER INC-202500163244

PATIENT
  Age: 82 Year
  Sex: Female

DRUGS (5)
  1. IBRANCE [Suspect]
     Active Substance: PALBOCICLIB
     Route: 048
     Dates: start: 20250408
  2. ALPRAZOLAM [Concomitant]
     Active Substance: ALPRAZOLAM
  3. DEXILANT [Concomitant]
     Active Substance: DEXLANSOPRAZOLE
  4. GEMTESA [Concomitant]
     Active Substance: VIBEGRON
  5. SYNTHROID [Concomitant]
     Active Substance: LEVOTHYROXINE SODIUM

REACTIONS (2)
  - Diarrhoea [Unknown]
  - Fatigue [Unknown]

NARRATIVE: CASE EVENT DATE: 20250101
